FAERS Safety Report 10037903 (Version 1)
Quarter: 2014Q1

REPORT INFORMATION
  Report Type: Report from Study
  Country: CA (occurrence: CA)
  Receive Date: 20140326
  Receipt Date: 20140326
  Transmission Date: 20141002
  Serious: Yes (Other)
  Sender: FDA-Public Use
  Company Number: CA-UCBSA-114814

PATIENT
  Age: 53 Year
  Sex: Female
  Weight: 72.6 kg

DRUGS (3)
  1. CIMZIA [Suspect]
     Indication: RHEUMATOID ARTHRITIS
     Route: 058
     Dates: end: 20131126
  2. CIMZIA [Suspect]
     Indication: RHEUMATOID ARTHRITIS
     Route: 058
     Dates: start: 20100625
  3. CIMZIA [Suspect]
     Indication: RHEUMATOID ARTHRITIS
     Dosage: WEEK 0 - 2 - 4
     Route: 058
     Dates: start: 20100514, end: 20100611

REACTIONS (2)
  - Pyoderma gangrenosum [Not Recovered/Not Resolved]
  - Inappropriate schedule of drug administration [Recovered/Resolved]
